FAERS Safety Report 15060998 (Version 1)
Quarter: 2018Q2

REPORT INFORMATION
  Report Type: Spontaneous
  Country: US (occurrence: US)
  Receive Date: 20180625
  Receipt Date: 20180625
  Transmission Date: 20180711
  Serious: Yes (Other)
  Sender: FDA-Public Use
  Company Number: US-ROCHE-2096292

PATIENT
  Sex: Female
  Weight: 64.92 kg

DRUGS (3)
  1. KLONOPIN [Suspect]
     Active Substance: CLONAZEPAM
     Dosage: AT NIGHT ; ONGOING: YES
     Route: 065
  2. VITAMIN B12 [Concomitant]
     Active Substance: CYANOCOBALAMIN
  3. KLONOPIN [Suspect]
     Active Substance: CLONAZEPAM
     Indication: ANXIETY
     Dosage: A QUARTER OF ONE IN MORNING, HALF ONE AT NIGHTONGOING: NO
     Route: 065

REACTIONS (8)
  - Somnolence [Unknown]
  - Dizziness [Unknown]
  - Gait disturbance [Unknown]
  - Motor dysfunction [Unknown]
  - Fatigue [Unknown]
  - Depression [Unknown]
  - Bradyphrenia [Unknown]
  - Memory impairment [Unknown]
